FAERS Safety Report 8068389-2 (Version None)
Quarter: 2012Q1

REPORT INFORMATION
  Report Type: 
  Country: None (occurrence: None)
  Receive Date: 20120124
  Receipt Date: 20111021
  Transmission Date: 20120608
  Serious: No
  Sender: FDA-Public Use
  Company Number: US-AMGEN-USASP2011054854

PATIENT
  Age: 52 Year
  Sex: Female

DRUGS (1)
  1. XGEVA [Suspect]
     Indication: METASTASES TO BONE
     Dosage: UNK
     Dates: start: 20091216

REACTIONS (5)
  - DIARRHOEA [None]
  - VOMITING [None]
  - HEADACHE [None]
  - INFLUENZA LIKE ILLNESS [None]
  - DIZZINESS [None]
